FAERS Safety Report 21058721 (Version 4)
Quarter: 2022Q3

REPORT INFORMATION
  Report Type: Spontaneous
  Country: US (occurrence: US)
  Receive Date: 20220708
  Receipt Date: 20220922
  Transmission Date: 20221027
  Serious: No
  Sender: FDA-Public Use
  Company Number: US-PFIZER INC-202200934766

PATIENT
  Age: 66 Year
  Sex: Female
  Weight: 48.99 kg

DRUGS (1)
  1. PAXLOVID [Suspect]
     Active Substance: NIRMATRELVIR\RITONAVIR
     Indication: COVID-19 treatment
     Dosage: UNK
     Dates: start: 20220705

REACTIONS (3)
  - Dysgeusia [Unknown]
  - Retching [Unknown]
  - Dizziness [Unknown]

NARRATIVE: CASE EVENT DATE: 20220701
